FAERS Safety Report 12164125 (Version 2)
Quarter: 2017Q1

REPORT INFORMATION
  Report Type: Spontaneous
  Country: US (occurrence: US)
  Receive Date: 20160309
  Receipt Date: 20170209
  Transmission Date: 20170428
  Serious: No
  Sender: FDA-Public Use
  Company Number: US-ROCHE-1623834

PATIENT
  Sex: Female

DRUGS (1)
  1. XOLAIR [Suspect]
     Active Substance: OMALIZUMAB
     Indication: ASTHMA EXERCISE INDUCED
     Dosage: ALSO RECEIVED DOSE ON 07/AUG/2013
     Route: 058
     Dates: start: 20130806

REACTIONS (2)
  - Somnolence [Unknown]
  - Fatigue [Unknown]
